FAERS Safety Report 7314630-0 (Version None)
Quarter: 2011Q1

REPORT INFORMATION
  Report Type: 
  Country: None (occurrence: None)
  Receive Date: 20110225
  Receipt Date: 20110107
  Transmission Date: 20110831
  Serious: No
  Sender: FDA-Public Use
  Company Number: US-MYLANLABS-2010S1019426

PATIENT
  Age: 33 Year
  Sex: Female
  Weight: 60.33 kg

DRUGS (4)
  1. AMNESTEEM [Suspect]
     Indication: ACNE
     Route: 048
     Dates: start: 20100801, end: 20100901
  2. VALACYCLOVIR HYDROCHLORIDE [Concomitant]
  3. AMNESTEEM [Suspect]
     Route: 048
     Dates: start: 20100801, end: 20100901
  4. M.V.I. [Concomitant]

REACTIONS (3)
  - INFLUENZA LIKE ILLNESS [None]
  - HAEMATOCHEZIA [None]
  - ABDOMINAL PAIN [None]
